FAERS Safety Report 8436179-4 (Version None)
Quarter: 2012Q2

REPORT INFORMATION
  Report Type: 
  Country: None (occurrence: None)
  Receive Date: 20120614
  Receipt Date: 20120611
  Transmission Date: 20120825
  Serious: Yes (Other)
  Sender: FDA-Public Use
  Company Number: VE-PFIZER INC-2012124624

PATIENT
  Age: 74 Year
  Sex: Male

DRUGS (4)
  1. CONCOR [Concomitant]
     Dosage: 5 MG, 1X/DAY
     Route: 048
  2. CADUET [Suspect]
     Dosage: [AMLODIPINE BESILATE 5 MG] / [ATORVASTATIN CALCIUM 10 MG], UNK
     Route: 048
     Dates: start: 20100101
  3. AMLODIPINE/VALSARTAN [Concomitant]
     Dosage: 5-150MG
     Route: 048
  4. OMEPRAZOLE [Concomitant]
     Dosage: 20 MG, 1X/DAY
     Route: 048

REACTIONS (2)
  - LARYNGEAL CANCER [None]
  - VOCAL CORD DISORDER [None]
